FAERS Safety Report 4994227-8 (Version None)
Quarter: 2006Q1

REPORT INFORMATION
  Report Type: 
  Country: None (occurrence: None)
  Receive Date: 20060313
  Receipt Date: 20051212
  Transmission Date: 20060701
  Serious: Yes (Other)
  Sender: FDA-Public Use
  Company Number: PHEH2005US11713

PATIENT
  Age: 22 Year
  Sex: Female
  Weight: 86.6 kg

DRUGS (2)
  1. TRILEPTAL [Suspect]
     Indication: PARTIAL SEIZURES
     Dosage: 600 MG, BID,ORAL
     Route: 048
     Dates: start: 20050819, end: 20051012
  2. LAMICTAL [Suspect]
     Dosage: ORAL
     Route: 048
     Dates: start: 20050927, end: 20051012

REACTIONS (3)
  - PRURITUS [None]
  - RASH [None]
  - TOXIC EPIDERMAL NECROLYSIS [None]
